FAERS Safety Report 6095712-0 (Version None)
Quarter: 2009Q1

REPORT INFORMATION
  Report Type: 
  Country: None (occurrence: None)
  Receive Date: 20090227
  Receipt Date: 20080529
  Transmission Date: 20090719
  Serious: No
  Sender: FDA-Public Use
  Company Number: A0730179A

PATIENT
  Age: 41 Year
  Sex: Female

DRUGS (2)
  1. LAMICTAL [Suspect]
     Indication: BIPOLAR DISORDER
     Dosage: 150MG PER DAY
     Route: 048
     Dates: start: 20080405
  2. EFFEXOR [Concomitant]

REACTIONS (4)
  - BALANCE DISORDER [None]
  - FEELING ABNORMAL [None]
  - PRURITUS [None]
  - RASH PAPULAR [None]
